FAERS Safety Report 26215860 (Version 1)
Quarter: 2025Q4

REPORT INFORMATION
  Report Type: Report from Study
  Country: US (occurrence: US)
  Receive Date: 20251231
  Receipt Date: 20251231
  Transmission Date: 20260118
  Serious: Yes (Hospitalization, Other)
  Sender: TAKEDA
  Company Number: US-TAKEDA-2025TUS119803

PATIENT
  Age: 42 Year
  Sex: Female

DRUGS (2)
  1. VONICOG ALFA [Suspect]
     Active Substance: VONICOG ALFA
     Indication: Product used for unknown indication
     Dosage: 5200 INTERNATIONAL UNIT
  2. VONICOG ALFA [Suspect]
     Active Substance: VONICOG ALFA
     Dosage: 5200 INTERNATIONAL UNIT

REACTIONS (1)
  - Gastrointestinal haemorrhage [Recovering/Resolving]
